FAERS Safety Report 8313432-6 (Version None)
Quarter: 2012Q2

REPORT INFORMATION
  Report Type: 
  Country: None (occurrence: None)
  Receive Date: 20120426
  Receipt Date: 20120424
  Transmission Date: 20120825
  Serious: Yes (Death, Other)
  Sender: FDA-Public Use
  Company Number: PHHY2011NL85782

PATIENT
  Sex: Female
  Weight: 87 kg

DRUGS (1)
  1. SANDOSTATIN LAR [Suspect]
     Indication: ACROMEGALY
     Dosage: 20 MG, EVERY 4 WEEKS
     Route: 030
     Dates: start: 20110711

REACTIONS (3)
  - CEREBRAL HAEMORRHAGE [None]
  - CARDIAC ARREST [None]
  - ACUTE CORONARY SYNDROME [None]
